FAERS Safety Report 16909364 (Version 1)
Quarter: 2019Q4

REPORT INFORMATION
  Report Type: Spontaneous
  Country: US (occurrence: US)
  Receive Date: 20191011
  Receipt Date: 20191011
  Transmission Date: 20200122
  Serious: Yes (Other)
  Sender: FDA-Public Use
  Company Number: None

PATIENT
  Age: 6 Year
  Sex: Male
  Weight: 22.5 kg

DRUGS (1)
  1. OSELTAMIVIR 6 MG/ML SUSP TAMIFLU GENERIC NAME: OLSETAMIVIR PHOSPHATE [Suspect]
     Active Substance: OSELTAMIVIR
     Indication: INFLUENZA
     Dosage: ?          QUANTITY:7.5 ML;?
     Route: 048
     Dates: start: 20191010, end: 20191010

REACTIONS (7)
  - Agitation [None]
  - Crying [None]
  - Depressed mood [None]
  - Fatigue [None]
  - Confusional state [None]
  - Pyrexia [None]
  - Ear pain [None]

NARRATIVE: CASE EVENT DATE: 20191010
